FAERS Safety Report 5894430-9 (Version None)
Quarter: 2008Q3

REPORT INFORMATION
  Report Type: 
  Country: None (occurrence: None)
  Receive Date: 20080923
  Receipt Date: 20080923
  Transmission Date: 20090109
  Serious: Yes (Life-Threatening, Hospitalization, Other)
  Sender: FDA-Public Use
  Company Number: None

PATIENT
  Age: 42 Year
  Sex: Female
  Weight: 68.0396 kg

DRUGS (6)
  1. LEVAQUIN [Suspect]
     Indication: BRONCHITIS
     Dosage: 750 MG TQD PO
     Route: 048
     Dates: start: 20080725
  2. LEVAQUIN [Suspect]
     Indication: SINUSITIS
     Dosage: 750 MG TQD PO
     Route: 048
     Dates: start: 20080725
  3. HYCODAN [Concomitant]
  4. CELEBREX [Concomitant]
  5. NEXIUM [Concomitant]
  6. PREDNISONE [Concomitant]

REACTIONS (11)
  - ANXIETY [None]
  - BLADDER DISORDER [None]
  - CHEST DISCOMFORT [None]
  - DYSPNOEA [None]
  - HEMIPLEGIA [None]
  - MALAISE [None]
  - MUSCULAR WEAKNESS [None]
  - NIGHTMARE [None]
  - PARANOIA [None]
  - SLEEP TERROR [None]
  - TENDINOUS CONTRACTURE [None]
